FAERS Safety Report 5691069-5 (Version None)
Quarter: 2008Q2

REPORT INFORMATION
  Report Type: 
  Country: None (occurrence: None)
  Receive Date: 20080401
  Receipt Date: 20080320
  Transmission Date: 20081010
  Serious: Yes (Other)
  Sender: FDA-Public Use
  Company Number: US-PFIZER INC-2008026431

PATIENT
  Sex: Female
  Weight: 68 kg

DRUGS (8)
  1. NEURONTIN [Suspect]
     Indication: FIBROMYALGIA
     Dates: start: 20080315, end: 20080320
  2. SYNTHROID [Concomitant]
  3. ZOCOR [Concomitant]
  4. AMBIEN [Concomitant]
  5. PROZAC [Concomitant]
  6. LISINOPRIL [Concomitant]
  7. COLACE [Concomitant]
  8. NORVASC [Concomitant]

REACTIONS (2)
  - ACTIVITIES OF DAILY LIVING IMPAIRED [None]
  - LETHARGY [None]
